FAERS Safety Report 8050223-8 (Version None)
Quarter: 2012Q1

REPORT INFORMATION
  Report Type: 
  Country: None (occurrence: None)
  Receive Date: 20120117
  Receipt Date: 20120110
  Transmission Date: 20120608
  Serious: Yes (Other)
  Sender: FDA-Public Use
  Company Number: PHHY2012US002302

PATIENT
  Age: 57 Year
  Sex: Male

DRUGS (8)
  1. METRONIDAZOLE [Suspect]
     Indication: DIARRHOEA HAEMORRHAGIC
     Dosage: UNK UKN, UNK
  2. SULFAMETHOXAZOLE AND TRIMETHOPRIM [Concomitant]
     Dosage: UNK UKN, UNK
  3. FLUCONAZOLE [Concomitant]
     Dosage: UNK UKN, UNK
  4. TACROLIMUS [Concomitant]
     Dosage: UNK UKN, UNK
  5. ACYCLOVIR [Concomitant]
     Indication: PROPHYLAXIS
     Dosage: UNK UKN, UNK
  6. METRONIDAZOLE [Suspect]
     Indication: DIARRHOEA
  7. PREDNISONE [Concomitant]
     Dosage: 15 MG, QD
  8. INSULIN [Concomitant]
     Dosage: UNK UKN, UNK

REACTIONS (7)
  - GRANDIOSITY [None]
  - DIARRHOEA [None]
  - MANIA [None]
  - AFFECTIVE DISORDER [None]
  - PSYCHOMOTOR HYPERACTIVITY [None]
  - SPEECH DISORDER [None]
  - THINKING ABNORMAL [None]
